FAERS Safety Report 7654980-1 (Version None)
Quarter: 2011Q3

REPORT INFORMATION
  Report Type: 
  Country: None (occurrence: None)
  Receive Date: 20110804
  Receipt Date: 20110722
  Transmission Date: 20111222
  Serious: Yes (Hospitalization)
  Sender: FDA-Public Use
  Company Number: JP-ELI_LILLY_AND_COMPANY-JP201104005596

PATIENT
  Age: 78 Year
  Sex: Female

DRUGS (2)
  1. EVISTA [Suspect]
     Indication: OSTEOPOROSIS
     Dosage: UNK
     Route: 048
     Dates: start: 20100218, end: 20110421
  2. REMODELLIN [Concomitant]
     Indication: OSTEOPOROSIS
     Dosage: 0.5 UG, UNK
     Route: 048
     Dates: start: 20100218

REACTIONS (3)
  - CATARACT [None]
  - CONTUSION [None]
  - SUBDURAL HAEMATOMA [None]
